FAERS Safety Report 8784311 (Version 1)
Quarter: 2012Q4

REPORT INFORMATION
  Report Type: 
  Country: US (occurrence: US)
  Receive Date: 20120913
  Receipt Date: 20120913
  Transmission Date: 20130627
  Serious: Yes (Other)
  Sender: FDA-Public Use
  Company Number: US-FRI-1000038464

PATIENT
  Age: 64 Year
  Sex: Female

DRUGS (1)
  1. CELEXA [Suspect]
     Indication: DEPRESSION
     Dosage: 10 mg
     Dates: start: 20120909, end: 20120909

REACTIONS (1)
  - Suicidal ideation [Not Recovered/Not Resolved]
